FAERS Safety Report 24782746 (Version 7)
Quarter: 2025Q2

REPORT INFORMATION
  Report Type: Report from Study
  Country: US (occurrence: US)
  Receive Date: 20241227
  Receipt Date: 20250623
  Transmission Date: 20250716
  Serious: No
  Sender: ACADIA PHARMACEUTICALS
  Company Number: US-ACADIA PHARMACEUTICALS INC.-ACA-2024-TRF-008772

PATIENT

DRUGS (5)
  1. DAYBUE [Suspect]
     Active Substance: TROFINETIDE
     Indication: Rett syndrome
     Dosage: 40 MILLILITER, BID
  2. DAYBUE [Suspect]
     Active Substance: TROFINETIDE
     Dosage: 45 MILLILITER, BID
  3. FELBATOL [Concomitant]
     Active Substance: FELBAMATE
     Dosage: 600 MILLIGRAM, BID
  4. KEPPRA [Concomitant]
     Active Substance: LEVETIRACETAM
     Dosage: 10 MILLILITER, BID
  5. VIMPAT [Concomitant]
     Active Substance: LACOSAMIDE
     Dosage: 150 MILLIGRAM, BID

REACTIONS (1)
  - Diarrhoea [Not Recovered/Not Resolved]
